FAERS Safety Report 4337861-0 (Version None)
Quarter: 2004Q2

REPORT INFORMATION
  Report Type: 
  Country: None (occurrence: None)
  Receive Date: 20040412
  Receipt Date: 20040213
  Transmission Date: 20050107
  Serious: No
  Sender: FDA-Public Use
  Company Number: A03200400468

PATIENT

DRUGS (1)
  1. ARIXTRA [Suspect]
     Indication: THROMBOSIS PROPHYLAXIS
     Dosage: SUBCUTANEOUS
     Route: 058

REACTIONS (1)
  - JOINT STIFFNESS [None]
